FAERS Safety Report 10739667 (Version 1)
Quarter: 2015Q1

REPORT INFORMATION
  Report Type: Spontaneous
  Country: US (occurrence: US)
  Receive Date: 20150127
  Receipt Date: 20150127
  Transmission Date: 20150721
  Serious: Yes (Other)
  Sender: FDA-Public Use
  Company Number: US-JNJFOC-20150111564

PATIENT
  Age: 15 Year
  Sex: Female
  Weight: 58.97 kg

DRUGS (2)
  1. ETHANOL [Suspect]
     Active Substance: ALCOHOL
     Indication: PRODUCT USED FOR UNKNOWN INDICATION
     Dosage: HAD SOME BEER
     Route: 048
     Dates: start: 20070617, end: 20070617
  2. TYLENOL EXTRA STRENGTH [Suspect]
     Active Substance: ACETAMINOPHEN
     Indication: PAIN
     Dosage: AT 15:00
     Route: 048
     Dates: start: 20070617, end: 20070617

REACTIONS (5)
  - Accidental overdose [Unknown]
  - Nausea [Unknown]
  - Abdominal pain upper [Unknown]
  - Chest pain [Unknown]
  - Dizziness [Unknown]

NARRATIVE: CASE EVENT DATE: 20070617
